FAERS Safety Report 9547037 (Version 1)
Quarter: 2013Q3

REPORT INFORMATION
  Report Type: Spontaneous
  Country: US (occurrence: US)
  Receive Date: 20130924
  Receipt Date: 20130924
  Transmission Date: 20140515
  Serious: Yes (Other)
  Sender: FDA-Public Use
  Company Number: US-009507513-1309USA007677

PATIENT
  Sex: Male

DRUGS (2)
  1. SINEMET [Suspect]
     Dosage: UNK
  2. SKELAXIN [Suspect]
     Dosage: UNK

REACTIONS (5)
  - Leukaemia [Unknown]
  - Muscle spasms [Unknown]
  - Local swelling [Unknown]
  - Foot deformity [Unknown]
  - Night sweats [Unknown]
